FAERS Safety Report 8247759-3 (Version None)
Quarter: 2012Q1

REPORT INFORMATION
  Report Type: 
  Country: None (occurrence: None)
  Receive Date: 20120330
  Receipt Date: 20120323
  Transmission Date: 20120608
  Serious: Yes (Hospitalization)
  Sender: FDA-Public Use
  Company Number: NL-GLAXOSMITHKLINE-B0791937A

PATIENT
  Sex: Male

DRUGS (5)
  1. HYDROCHLOROTHIAZIDE [Concomitant]
     Dosage: 12.5MG PER DAY
     Route: 048
  2. LISINOPRIL [Concomitant]
     Dosage: 20MG PER DAY
     Route: 048
  3. SUMATRIPTAN SUCCINATE [Suspect]
     Indication: HEADACHE
     Route: 054
     Dates: start: 19980101, end: 20120111
  4. PROPRANOLOL [Concomitant]
     Dosage: 40MG THREE TIMES PER DAY
     Route: 048
  5. AMITRIPTYLINE HCL [Concomitant]
     Dosage: 40MG PER DAY
     Route: 048

REACTIONS (2)
  - HEMIPARESIS [None]
  - COLITIS ISCHAEMIC [None]
